FAERS Safety Report 7708774-9 (Version None)
Quarter: 2011Q3

REPORT INFORMATION
  Report Type: 
  Country: None (occurrence: None)
  Receive Date: 20110824
  Receipt Date: 20110824
  Transmission Date: 20111222
  Serious: Yes (Hospitalization)
  Sender: FDA-Public Use
  Company Number: None

PATIENT
  Sex: Male
  Weight: 74.5 kg

DRUGS (8)
  1. PEG-L-ASPARAGINASE (K-H) [Suspect]
     Dosage: 4825 MG
  2. CYCLOPHOSPHAMIDE [Suspect]
     Dosage: 1940 MG
  3. CYTARABINE [Suspect]
     Dosage: 1160 MG
  4. VINCRISTINE SULFATE [Suspect]
     Dosage: 6 MG
  5. THIOGUANINE [Suspect]
     Dosage: 10920 MG
  6. DOXORUBICIN HYDROCHLORIDE [Suspect]
     Dosage: 150 MG
  7. DEXAMETHASONE [Suspect]
     Dosage: 280 MG
  8. METHOTREXATE [Suspect]
     Dosage: 45 MG

REACTIONS (6)
  - BLADDER DISORDER [None]
  - BACK PAIN [None]
  - HEADACHE [None]
  - HAEMATURIA [None]
  - PANCYTOPENIA [None]
  - FALL [None]
